FAERS Safety Report 8530295-4 (Version None)
Quarter: 2012Q3

REPORT INFORMATION
  Report Type: 
  Country: None (occurrence: None)
  Receive Date: 20120711
  Receipt Date: 20120625
  Transmission Date: 20120928
  Serious: Yes (Hospitalization)
  Sender: FDA-Public Use
  Company Number: 2012MA007831

PATIENT
  Age: 33 Year
  Sex: Female

DRUGS (1)
  1. MICONAZOLE NITRATE [Suspect]
     Indication: FUNGAL INFECTION
     Dosage: 2 PCT;QD;VAG
     Route: 067
     Dates: start: 20120601

REACTIONS (2)
  - CONDITION AGGRAVATED [None]
  - VULVOVAGINAL MYCOTIC INFECTION [None]
